FAERS Safety Report 9352873 (Version 2)
Quarter: 2013Q3

REPORT INFORMATION
  Report Type: Spontaneous
  Country: CA (occurrence: CA)
  Receive Date: 20130618
  Receipt Date: 20130716
  Transmission Date: 20140515
  Serious: Yes (Other)
  Sender: FDA-Public Use
  Company Number: CA-AMGEN-CANSP2013042162

PATIENT
  Age: 39 Year
  Sex: Female
  Weight: 72.2 kg

DRUGS (3)
  1. XGEVA [Suspect]
     Indication: BREAST CANCER METASTATIC
     Dosage: 120 MG, UNK
     Route: 058
     Dates: start: 201305, end: 20130530
  2. TAMOXIFEN [Concomitant]
     Indication: NEOPLASM MALIGNANT
     Dosage: 20 MG, QD
     Route: 048
     Dates: start: 20130513, end: 20130530
  3. MORPHINE [Concomitant]
     Indication: PAIN
     Dosage: 5 MG, QHS
     Route: 048
     Dates: start: 20130513

REACTIONS (3)
  - Dysphagia [Recovered/Resolved]
  - Throat tightness [Unknown]
  - Hypersensitivity [Recovered/Resolved]
